FAERS Safety Report 22001878 (Version 1)
Quarter: 2023Q1

REPORT INFORMATION
  Report Type: Spontaneous
  Country: US (occurrence: US)
  Receive Date: 20230216
  Receipt Date: 20230216
  Transmission Date: 20230417
  Serious: No
  Sender: FDA-Public Use
  Company Number: US-BRISTOL-MYERS SQUIBB COMPANY-2023-023596

PATIENT
  Age: 34 Year
  Sex: Male

DRUGS (1)
  1. SOTYKTU [Suspect]
     Active Substance: DEUCRAVACITINIB
     Indication: Psoriasis
     Route: 048

REACTIONS (7)
  - Lethargy [Unknown]
  - Sinusitis [Unknown]
  - Respiratory symptom [Unknown]
  - Acne [Unknown]
  - Back pain [Unknown]
  - Toothache [Unknown]
  - Swelling face [Recovered/Resolved]
